FAERS Safety Report 6653985-7 (Version None)
Quarter: 2010Q1

REPORT INFORMATION
  Report Type: 
  Country: None (occurrence: None)
  Receive Date: 20100324
  Receipt Date: 20100317
  Transmission Date: 20100710
  Serious: Yes (Death)
  Sender: FDA-Public Use
  Company Number: 2010SP016502

PATIENT
  Age: 66 Year
  Sex: Male

DRUGS (6)
  1. MIRTAZAPINE [Suspect]
     Indication: DEPRESSION
     Dosage: 15 MG; QD; PO; 30 MG; QD; PO
     Route: 048
     Dates: start: 20100216, end: 20100222
  2. MIRTAZAPINE [Suspect]
     Indication: DEPRESSION
     Dosage: 15 MG; QD; PO; 30 MG; QD; PO
     Route: 048
     Dates: start: 20100223, end: 20100227
  3. SEROQUEL [Suspect]
     Indication: DRUG USE FOR UNKNOWN INDICATION
     Dosage: 50 MG; QD; PO
     Route: 048
     Dates: start: 20100204, end: 20100227
  4. MOSAPRIDE CITRATE [Concomitant]
  5. ZYPREXA [Concomitant]
  6. RISPERDAL [Concomitant]

REACTIONS (3)
  - ABDOMINAL PAIN UPPER [None]
  - COMPLETED SUICIDE [None]
  - DYSGEUSIA [None]
